FAERS Safety Report 9975078 (Version 1)
Quarter: 2014Q1

REPORT INFORMATION
  Report Type: Report from Study
  Country: US (occurrence: US)
  Receive Date: 20140306
  Receipt Date: 20140306
  Transmission Date: 20141002
  Serious: No
  Sender: FDA-Public Use
  Company Number: US-ABBVIE-13P-163-1160046-00

PATIENT
  Age: 19 Year
  Sex: Female

DRUGS (5)
  1. HUMIRA [Suspect]
     Indication: ANKYLOSING SPONDYLITIS
     Dosage: INITIAL DOSE
     Dates: start: 20131011
  2. IBUPROFEN [Concomitant]
     Indication: ANKYLOSING SPONDYLITIS
  3. IBUPROFEN [Concomitant]
     Indication: ARTHRALGIA
  4. TRAMADOL [Concomitant]
     Indication: ANKYLOSING SPONDYLITIS
  5. TRAMADOL [Concomitant]
     Indication: ARTHRALGIA

REACTIONS (5)
  - Sensation of heaviness [Unknown]
  - Ankylosing spondylitis [Not Recovered/Not Resolved]
  - Headache [Unknown]
  - Pain in jaw [Unknown]
  - Influenza like illness [Unknown]
